FAERS Safety Report 6139814-9 (Version None)
Quarter: 2009Q2

REPORT INFORMATION
  Report Type: 
  Country: None (occurrence: None)
  Receive Date: 20090401
  Receipt Date: 20090323
  Transmission Date: 20091009
  Serious: Yes (Other)
  Sender: FDA-Public Use
  Company Number: B0567112A

PATIENT
  Sex: Male
  Weight: 72 kg

DRUGS (2)
  1. SERETIDE [Suspect]
     Route: 055
     Dates: start: 20070101, end: 20080501
  2. XYZAL [Concomitant]
     Route: 048
     Dates: start: 20040101

REACTIONS (3)
  - INFERTILITY MALE [None]
  - SPERM COUNT INCREASED [None]
  - SPERMATOZOA ABNORMAL [None]
